FAERS Safety Report 5601144-9 (Version None)
Quarter: 2008Q1

REPORT INFORMATION
  Report Type: 
  Country: None (occurrence: None)
  Receive Date: 20080122
  Receipt Date: 20080122
  Transmission Date: 20080703
  Serious: Yes (Other)
  Sender: FDA-Public Use
  Company Number: None

PATIENT
  Age: 53 Year
  Sex: Female
  Weight: 63.5036 kg

DRUGS (1)
  1. ACTONEL [Suspect]
     Indication: OSTEOPOROSIS
     Dosage: 35MG ONCE A WEEK PO
     Route: 048
     Dates: start: 20070505, end: 20080117

REACTIONS (6)
  - ACCIDENT [None]
  - CRYING [None]
  - DEPRESSION [None]
  - IRRITABILITY [None]
  - PAIN IN EXTREMITY [None]
  - PLANTAR FASCIITIS [None]
